FAERS Safety Report 4863549-3 (Version None)
Quarter: 2005Q4

REPORT INFORMATION
  Report Type: 
  Country: None (occurrence: None)
  Receive Date: 20051222
  Receipt Date: 20050418
  Transmission Date: 20060501
  Serious: No
  Sender: FDA-Public Use
  Company Number: US-GLAXOSMITHKLINE-A0554857A

PATIENT
  Sex: Female

DRUGS (3)
  1. FLONASE [Suspect]
     Indication: DRUG USE FOR UNKNOWN INDICATION
     Route: 045
  2. SINGULAIR [Concomitant]
     Route: 065
  3. ZYRTEC [Concomitant]
     Dosage: 10MG PER DAY
     Route: 065

REACTIONS (2)
  - OROPHARYNGITIS FUNGAL [None]
  - THROAT LESION [None]
